FAERS Safety Report 14555638 (Version 2)
Quarter: 2018Q1

REPORT INFORMATION
  Report Type: Report from Study
  Country: None (occurrence: US)
  Receive Date: 20180220
  Receipt Date: 20180327
  Transmission Date: 20180509
  Serious: Yes (Hospitalization, Other)
  Sender: FDA-Public Use
  Company Number: US-ABBVIE-17K-163-1884500-00

PATIENT
  Age: 61 Year
  Sex: Female
  Weight: 85.81 kg

DRUGS (8)
  1. HUMIRA [Suspect]
     Active Substance: ADALIMUMAB
     Route: 058
     Dates: start: 20171013, end: 20171013
  2. ATENOLOL. [Concomitant]
     Active Substance: ATENOLOL
     Indication: HYPERTENSION
  3. SIMVASTATIN. [Concomitant]
     Active Substance: SIMVASTATIN
     Indication: BLOOD CHOLESTEROL INCREASED
  4. AMLODIPINE [Concomitant]
     Active Substance: AMLODIPINE BESYLATE
     Indication: HYPERTENSION
  5. HUMIRA [Suspect]
     Active Substance: ADALIMUMAB
     Indication: PSORIASIS
     Dosage: DAY1
     Route: 058
     Dates: start: 20170126, end: 20170126
  6. HUMIRA [Suspect]
     Active Substance: ADALIMUMAB
     Route: 058
     Dates: start: 2017, end: 20170915
  7. HUMIRA [Suspect]
     Active Substance: ADALIMUMAB
     Route: 058
     Dates: start: 201702, end: 201702
  8. HUMIRA [Suspect]
     Active Substance: ADALIMUMAB
     Route: 058
     Dates: start: 20171124

REACTIONS (16)
  - Glaucoma [Not Recovered/Not Resolved]
  - Pruritus [Unknown]
  - Pain of skin [Recovering/Resolving]
  - Blister [Recovered/Resolved]
  - Rash [Unknown]
  - Pruritus [Recovering/Resolving]
  - Wound complication [Unknown]
  - Skin irritation [Recovering/Resolving]
  - Injection site pain [Unknown]
  - Pruritus [Recovering/Resolving]
  - Cellulitis [Recovered/Resolved]
  - External ear cellulitis [Recovered/Resolved]
  - General physical condition abnormal [Unknown]
  - Emotional distress [Unknown]
  - Skin plaque [Not Recovered/Not Resolved]
  - Skin bacterial infection [Recovering/Resolving]

NARRATIVE: CASE EVENT DATE: 2017
